FAERS Safety Report 9401070 (Version 1)
Quarter: 2013Q3

REPORT INFORMATION
  Report Type: Spontaneous
  Country: US (occurrence: US)
  Receive Date: 20130715
  Receipt Date: 20130715
  Transmission Date: 20140515
  Serious: No
  Sender: FDA-Public Use
  Company Number: US-PFIZER INC-2013202465

PATIENT
  Age: 64 Year
  Sex: Male
  Weight: 70.3 kg

DRUGS (7)
  1. VIAGRA [Suspect]
     Dosage: UNK
  2. ANDROGEL [Suspect]
     Indication: BLOOD TESTOSTERONE DECREASED
     Dosage: 7.5 G, UNK
     Dates: start: 1993, end: 2012
  3. ACETYLSALICYLIC ACID [Concomitant]
     Dosage: 0.25 MG, 1X/DAY
  4. FISH OIL [Concomitant]
     Indication: SUPPLEMENTATION THERAPY
     Dosage: UNK
  5. COD-LIVER OIL [Concomitant]
     Dosage: UNK
  6. CO-Q-10 [Concomitant]
     Dosage: UNK
  7. VIGRAN [Concomitant]
     Indication: SUPPLEMENTATION THERAPY
     Dosage: UNK

REACTIONS (7)
  - Anger [Unknown]
  - Irritability [Unknown]
  - Erectile dysfunction [Unknown]
  - Breast enlargement [Recovered/Resolved]
  - Nasal congestion [Unknown]
  - Flushing [Unknown]
  - Organic erectile dysfunction [Unknown]
